FAERS Safety Report 24051584 (Version 2)
Quarter: 2024Q3

REPORT INFORMATION
  Report Type: Spontaneous
  Country: FR (occurrence: None)
  Receive Date: 20240704
  Receipt Date: 20240710
  Transmission Date: 20241017
  Serious: Yes (Other)
  Sender: ASTRAZENECA
  Company Number: 2024A151244

PATIENT
  Age: 41 Year
  Sex: Female

DRUGS (5)
  1. DAPAGLIFLOZIN [Suspect]
     Active Substance: DAPAGLIFLOZIN
     Indication: Renal disorder
     Route: 048
     Dates: start: 20240131
  2. BUDESONIDE\FORMOTEROL FUMARATE DIHYDRATE [Concomitant]
     Active Substance: BUDESONIDE\FORMOTEROL FUMARATE DIHYDRATE
     Indication: Chronic obstructive pulmonary disease
  3. UNSPECIFIED INGREDIENT [Concomitant]
     Active Substance: UNSPECIFIED INGREDIENT
  4. NOMEGESTROL [Concomitant]
     Active Substance: NOMEGESTROL
  5. XULTOPHY 100/3.6 [Concomitant]
     Active Substance: INSULIN DEGLUDEC\LIRAGLUTIDE

REACTIONS (3)
  - Nephrolithiasis [Not Recovered/Not Resolved]
  - Off label use [Unknown]
  - Cystitis [Unknown]

NARRATIVE: CASE EVENT DATE: 20240101
